FAERS Safety Report 15141138 (Version 1)
Quarter: 2018Q3

REPORT INFORMATION
  Report Type: Other
  Country: JP (occurrence: JP)
  Receive Date: 20180713
  Receipt Date: 20180713
  Transmission Date: 20181010
  Serious: Yes (Other)
  Sender: FDA-Public Use
  Company Number: JP-ALLIED PHARMA, LLC-2051947

PATIENT
  Sex: Female

DRUGS (4)
  1. SITAFLOXACIN [Suspect]
     Active Substance: SITAFLOXACIN
     Route: 065
  2. RIFAMPICIN [Suspect]
     Active Substance: RIFAMPIN
     Route: 065
  3. CLARITHROMYCIN. [Suspect]
     Active Substance: CLARITHROMYCIN
     Indication: MYCOBACTERIUM AVIUM COMPLEX INFECTION
     Route: 065
  4. ETHAMBUTOL (EMB) [Suspect]
     Active Substance: ETHAMBUTOL HYDROCHLORIDE
     Route: 065

REACTIONS (4)
  - Pleural infection [None]
  - Drug resistance [Unknown]
  - Optic neuropathy [Unknown]
  - Disease progression [Unknown]
